FAERS Safety Report 23158250 (Version 1)
Quarter: 2023Q4

REPORT INFORMATION
  Report Type: Spontaneous
  Country: US (occurrence: US)
  Receive Date: 20231108
  Receipt Date: 20231108
  Transmission Date: 20240110
  Serious: No
  Sender: FDA-Public Use
  Company Number: US-ABBVIE-5485015

PATIENT

DRUGS (1)
  1. VRAYLAR [Suspect]
     Active Substance: CARIPRAZINE
     Indication: Major depression
     Dosage: WAS ON VRAYLAR 1.5 FOR ABOUT 2 TO 3 MONTHS
     Route: 048

REACTIONS (2)
  - Agitation [Unknown]
  - Irritability [Unknown]
